FAERS Safety Report 5268292-7 (Version None)
Quarter: 2007Q1

REPORT INFORMATION
  Report Type: 
  Country: None (occurrence: None)
  Receive Date: 20070319
  Receipt Date: 20070308
  Transmission Date: 20070707
  Serious: Yes (Hospitalization)
  Sender: FDA-Public Use
  Company Number: HQWYE248209MAR07

PATIENT
  Sex: Female

DRUGS (3)
  1. RAPAMUNE [Suspect]
  2. PREDNISONE [Concomitant]
  3. CELLCEPT [Concomitant]

REACTIONS (3)
  - RHABDOMYOLYSIS [None]
  - SEPSIS [None]
  - UROSEPSIS [None]
